FAERS Safety Report 25203547 (Version 1)
Quarter: 2025Q2

REPORT INFORMATION
  Report Type: Spontaneous
  Country: DE (occurrence: DE)
  Receive Date: 20250416
  Receipt Date: 20250416
  Transmission Date: 20250716
  Serious: Yes (Death, Life-Threatening, Hospitalization, Other)
  Sender: SANDOZ
  Company Number: DE-002147023-PHHY2019DE158599

PATIENT
  Sex: Female
  Weight: 51 kg

DRUGS (2)
  1. FULVESTRANT [Suspect]
     Active Substance: FULVESTRANT
     Indication: Breast cancer metastatic
     Dosage: 500 MG, Q4W
     Route: 030
     Dates: start: 20190429, end: 20190527
  2. RIBOCICLIB [Suspect]
     Active Substance: RIBOCICLIB
     Indication: Breast cancer metastatic
     Dosage: 400 MG, QD (SCHEMA 21 DAYS INTAKE  THAN 7 DAYS PAUSE)
     Route: 065

REACTIONS (7)
  - Malignant neoplasm progression [Fatal]
  - Breast cancer metastatic [Fatal]
  - Pneumonia [Fatal]
  - Pleural effusion [Not Recovered/Not Resolved]
  - Electrocardiogram QRS complex shortened [Not Recovered/Not Resolved]
  - Electrocardiogram T wave amplitude decreased [Not Recovered/Not Resolved]
  - Off label use [Unknown]

NARRATIVE: CASE EVENT DATE: 20190527
